FAERS Safety Report 7954453-2 (Version None)
Quarter: 2011Q4

REPORT INFORMATION
  Report Type: 
  Country: None (occurrence: None)
  Receive Date: 20111202
  Receipt Date: 20111122
  Transmission Date: 20120403
  Serious: No
  Sender: FDA-Public Use
  Company Number: AU-JNJFOC-20111110021

PATIENT
  Age: 63 Year
  Sex: Female

DRUGS (4)
  1. OXYCODONE HCL [Suspect]
     Indication: FRACTURE
     Dosage: 5 MG UPTO 4 A DAY, WHETHER PATIENT HAS A BROKEN BONE OR NOT
     Route: 065
  2. DURAGESIC-100 [Suspect]
     Indication: OSTEOPETROSIS
     Route: 062
  3. MS CONTIN [Suspect]
     Indication: PRODUCT USED FOR UNKNOWN INDICATION
     Dosage: FOR 2 DAYS
     Route: 065
  4. MS CONTIN [Suspect]
     Dosage: 3RD DAY 60 AND 30 MG
     Route: 065

REACTIONS (4)
  - BREAKTHROUGH PAIN [None]
  - PRODUCT QUALITY ISSUE [None]
  - WRONG TECHNIQUE IN DRUG USAGE PROCESS [None]
  - HYPERHIDROSIS [None]
